FAERS Safety Report 14347192 (Version 3)
Quarter: 2018Q1

REPORT INFORMATION
  Report Type: Spontaneous
  Country: AU (occurrence: AU)
  Receive Date: 20180103
  Receipt Date: 20180206
  Transmission Date: 20180509
  Serious: Yes (Other)
  Sender: FDA-Public Use
  Company Number: AU-ABBVIE-17P-008-2208236-00

PATIENT
  Age: 30 Year
  Sex: Female

DRUGS (3)
  1. EPILIM [Suspect]
     Active Substance: VALPROATE SODIUM
     Indication: EPILEPSY
     Route: 048
     Dates: start: 201711, end: 20171219
  2. EPILIM [Suspect]
     Active Substance: VALPROATE SODIUM
     Indication: SEIZURE
     Route: 048
     Dates: start: 201711, end: 20171219
  3. EPILIM [Suspect]
     Active Substance: VALPROATE SODIUM
     Route: 048
     Dates: start: 20171220

REACTIONS (4)
  - Drug ineffective [Unknown]
  - Nausea [Recovered/Resolved]
  - Extra dose administered [Unknown]
  - Petit mal epilepsy [Recovered/Resolved]

NARRATIVE: CASE EVENT DATE: 20171220
